FAERS Safety Report 25945369 (Version 1)
Quarter: 2025Q4

REPORT INFORMATION
  Report Type: Spontaneous
  Country: CG (occurrence: CG)
  Receive Date: 20251021
  Receipt Date: 20251021
  Transmission Date: 20260117
  Serious: Yes (Death)
  Sender: NOVARTIS
  Company Number: CG-002147023-NVSC2025CG161965

PATIENT
  Sex: Female

DRUGS (1)
  1. GLIVEC [Suspect]
     Active Substance: IMATINIB MESYLATE
     Indication: Chronic myeloid leukaemia
     Dosage: 400 MG (4X100)
     Route: 065

REACTIONS (3)
  - Oncologic complication [Fatal]
  - Chronic myeloid leukaemia [Fatal]
  - Illness [Fatal]
